FAERS Safety Report 10018922 (Version 1)
Quarter: 2014Q1

REPORT INFORMATION
  Report Type: Report from Study
  Country: CA (occurrence: CA)
  Receive Date: 20140318
  Receipt Date: 20140318
  Transmission Date: 20141002
  Serious: Yes (Other)
  Sender: FDA-Public Use
  Company Number: CA-ABBVIE-14P-028-1212938-00

PATIENT
  Sex: Female

DRUGS (4)
  1. HUMIRA [Suspect]
     Indication: ANKYLOSING SPONDYLITIS
     Dosage: WEEKLY
     Route: 058
     Dates: start: 20091119, end: 20140223
  2. HUMIRA [Suspect]
     Dates: start: 20140303
  3. SYNTHROID [Concomitant]
     Indication: HYPOTHYROIDISM
  4. VITAMIN B12 [Concomitant]
     Indication: MALABSORPTION

REACTIONS (1)
  - Fistula [Recovering/Resolving]
